FAERS Safety Report 18556379 (Version 1)
Quarter: 2020Q4

REPORT INFORMATION
  Report Type: Spontaneous
  Country: FR (occurrence: FR)
  Receive Date: 20201128
  Receipt Date: 20201128
  Transmission Date: 20210114
  Serious: Yes (Other)
  Sender: FDA-Public Use
  Company Number: FR-ACCORD-209397

PATIENT
  Age: 71 Year
  Sex: Female
  Weight: 61 kg

DRUGS (4)
  1. PACLITAXEL ACCORD [Suspect]
     Active Substance: PACLITAXEL
     Indication: HER2 NEGATIVE BREAST CANCER
     Route: 042
     Dates: start: 20200826, end: 20200902
  2. STRYCHNOS NUX-VOMICA SEED. [Suspect]
     Active Substance: HERBALS\STRYCHNOS NUX-VOMICA SEED
     Indication: PRODUCT USED FOR UNKNOWN INDICATION
     Dosage: NUX VOMICA FOR HOMEOPATHIC PREPARATIONS
  3. VERBENA OFFICINALIS [Concomitant]
     Active Substance: HERBALS\HOMEOPATHICS
     Dosage: FRAGRANT VERBENA LEAF
  4. COPPER [Concomitant]
     Active Substance: COPPER
     Dosage: CUPRUM (HOMEOPATHY)

REACTIONS (2)
  - Neutropenia [Recovering/Resolving]
  - Oral fungal infection [Recovering/Resolving]

NARRATIVE: CASE EVENT DATE: 20200902
